FAERS Safety Report 18615038 (Version 1)
Quarter: 2020Q4

REPORT INFORMATION
  Report Type: Spontaneous
  Country: US (occurrence: US)
  Receive Date: 20201215
  Receipt Date: 20201215
  Transmission Date: 20210114
  Serious: No
  Sender: FDA-Public Use
  Company Number: US-RECORDATI RARE DISEASES-2102990

PATIENT
  Age: 38 Year
  Sex: Female

DRUGS (2)
  1. ISTURISA [Suspect]
     Active Substance: OSILODROSTAT PHOSPHATE
     Indication: PITUITARY-DEPENDENT CUSHING^S SYNDROME
     Dates: start: 20201022
  2. ISTURISA [Suspect]
     Active Substance: OSILODROSTAT PHOSPHATE

REACTIONS (5)
  - Muscle fatigue [Unknown]
  - Condition aggravated [Unknown]
  - Insomnia [Unknown]
  - Feeling abnormal [Unknown]
  - Menorrhagia [Unknown]

NARRATIVE: CASE EVENT DATE: 202010
